FAERS Safety Report 22013230 (Version 3)
Quarter: 2024Q3

REPORT INFORMATION
  Report Type: Spontaneous
  Country: US (occurrence: US)
  Receive Date: 20230220
  Receipt Date: 20240731
  Transmission Date: 20241017
  Serious: No
  Sender: AURINIA PHARMACEUTICALS
  Company Number: US-AURINIA PHARMACEUTICALS INC.-AUR-002760

PATIENT
  Sex: Female

DRUGS (2)
  1. LUPKYNIS [Suspect]
     Active Substance: VOCLOSPORIN
     Indication: Lupus nephritis
     Dosage: 23.7 MILLIGRAM, BID
     Route: 048
     Dates: start: 20221215
  2. LUPKYNIS [Suspect]
     Active Substance: VOCLOSPORIN
     Dosage: 23.7 MILLIGRAM, BID
     Route: 048
     Dates: start: 20221215

REACTIONS (14)
  - Arthralgia [Unknown]
  - Peripheral swelling [Unknown]
  - Musculoskeletal stiffness [Unknown]
  - Skin discolouration [Unknown]
  - Bone density decreased [Unknown]
  - COVID-19 [Recovered/Resolved]
  - Paraesthesia [Unknown]
  - Alopecia [Unknown]
  - Bone marrow disorder [Unknown]
  - Red blood cell count abnormal [Unknown]
  - Full blood count abnormal [Not Recovered/Not Resolved]
  - Product packaging difficult to open [Unknown]
  - Product storage error [Unknown]
  - Drug ineffective [Unknown]
